FAERS Safety Report 12093058 (Version 1)
Quarter: 2016Q1

REPORT INFORMATION
  Report Type: Spontaneous
  Country: US (occurrence: None)
  Receive Date: 20160218
  Receipt Date: 20160218
  Transmission Date: 20160526
  Serious: Yes (Other)
  Sender: FDA-Public Use
  Company Number: None

PATIENT
  Age: 54 Year
  Sex: Female
  Weight: 54.43 kg

DRUGS (7)
  1. DR FURTHMAN^S DHA + EPA PURITY [Concomitant]
  2. CALCIUM CITRATE [Concomitant]
     Active Substance: CALCIUM CITRATE
  3. GRAPEFRUIT SEED EXTRACT [Concomitant]
     Active Substance: GRAPEFRUIT SEED EXTRACT
  4. CIPRO [Suspect]
     Active Substance: CIPROFLOXACIN HYDROCHLORIDE
     Indication: URINARY TRACT INFECTION
     Dosage: 250 MG 4 DOSES TOTAL, ONE DOSE IN MORNING, ONE DOSE IN EVENING FOR TWO DAYS, BY MOUTH
     Route: 048
     Dates: start: 20151227, end: 20151228
  5. DR FURTHMAINS DAILY WOMEN^S VEGAN VITAMINS [Concomitant]
  6. BARLEY MAX PROBIOTIC [Concomitant]
  7. MAGNESIUM SUPPLEMENT [Concomitant]

REACTIONS (9)
  - Fatigue [None]
  - Jaw disorder [None]
  - Tinnitus [None]
  - Paraesthesia [None]
  - Chest discomfort [None]
  - Burning sensation [None]
  - Muscle tightness [None]
  - Anxiety [None]
  - Flatulence [None]

NARRATIVE: CASE EVENT DATE: 20151227
